FAERS Safety Report 5144327-7 (Version None)
Quarter: 2006Q4

REPORT INFORMATION
  Report Type: 
  Country: None (occurrence: None)
  Receive Date: 20061030
  Receipt Date: 20061020
  Transmission Date: 20070319
  Serious: Yes (Other)
  Sender: FDA-Public Use
  Company Number: 2006128692

PATIENT

DRUGS (1)
  1. CADUET [Suspect]

REACTIONS (1)
  - EYE OEDEMA [None]
